FAERS Safety Report 8773061 (Version 1)
Quarter: 2012Q4

REPORT INFORMATION
  Report Type: 
  Country: US (occurrence: US)
  Receive Date: 20120907
  Receipt Date: 20120907
  Transmission Date: 20130627
  Serious: Yes (Hospitalization, Other)
  Sender: FDA-Public Use
  Company Number: US-009507513-2012SP023358

PATIENT

DRUGS (3)
  1. VICTRELIS [Suspect]
     Indication: HEPATITIS C
     Dosage: UNK
     Dates: start: 201112, end: 20120212
  2. PEGINTERFERON ALFA-2A [Suspect]
     Indication: HEPATITIS C
     Dosage: 180 Microgram, UNK
     Dates: start: 20111113, end: 20120212
  3. COPEGUS [Suspect]
     Indication: HEPATITIS C
     Dosage: UNK UNK, qd
     Dates: start: 20111113, end: 20120212

REACTIONS (3)
  - Cardiac disorder [Unknown]
  - White blood cell count decreased [Unknown]
  - Psychotic disorder [Unknown]
